FAERS Safety Report 8502314-2 (Version None)
Quarter: 2012Q3

REPORT INFORMATION
  Report Type: 
  Country: None (occurrence: None)
  Receive Date: 20120711
  Receipt Date: 20120323
  Transmission Date: 20120928
  Serious: Yes (Death)
  Sender: FDA-Public Use
  Company Number: US-COVIDIEN/TYCO HEALTHCARE/MALLINCKRODT-T201201193

PATIENT
  Age: 33 Year
  Sex: Male

DRUGS (3)
  1. OXYCODONE HCL [Suspect]
     Dosage: UNK
  2. HEROIN [Suspect]
     Dosage: UNK
     Dates: start: 20110202
  3. COCAINE [Suspect]
     Dosage: UNK
     Dates: start: 20110202

REACTIONS (3)
  - OVERDOSE [None]
  - DRUG ABUSE [None]
  - DRUG DIVERSION [None]
